FAERS Safety Report 14018134 (Version 2)
Quarter: 2017Q4

REPORT INFORMATION
  Report Type: Spontaneous
  Country: JP (occurrence: JP)
  Receive Date: 20170928
  Receipt Date: 20171117
  Transmission Date: 20180321
  Serious: Yes (Other)
  Sender: FDA-Public Use
  Company Number: JP-CIPLA LTD.-2017JP17372

PATIENT

DRUGS (4)
  1. GEMCITABINE [Suspect]
     Active Substance: GEMCITABINE\GEMCITABINE HYDROCHLORIDE
     Indication: BLADDER TRANSITIONAL CELL CARCINOMA RECURRENT
     Dosage: 1000 MG/M2, AS A 30 MINUTE INFUSION ON DAYS 1 (3 TO 6 COURSES) AND 8, EVERY 4 WEEKS
     Route: 042
  2. CISPLATIN. [Suspect]
     Active Substance: CISPLATIN
     Indication: BLADDER TRANSITIONAL CELL CARCINOMA
     Dosage: UNK
     Route: 065
  3. CARBOPLATIN. [Suspect]
     Active Substance: CARBOPLATIN
     Indication: BLADDER TRANSITIONAL CELL CARCINOMA RECURRENT
     Dosage: ASA A 60-MIN INFUSION ON DAY 1, EVERY 4 WEEKS
     Route: 065
  4. PACLITAXEL. [Suspect]
     Active Substance: PACLITAXEL
     Indication: BLADDER TRANSITIONAL CELL CARCINOMA RECURRENT
     Dosage: 200 MG/M2, EVERY 4 WEEKS
     Route: 042

REACTIONS (7)
  - Myalgia [Unknown]
  - Neutropenia [Unknown]
  - Malaise [Unknown]
  - Drug resistance [Unknown]
  - Disease recurrence [Unknown]
  - Pyrexia [Unknown]
  - Thrombocytopenia [Unknown]
